FAERS Safety Report 16802553 (Version 1)
Quarter: 2019Q3

REPORT INFORMATION
  Report Type: Spontaneous
  Country: US (occurrence: US)
  Receive Date: 20190912
  Receipt Date: 20190912
  Transmission Date: 20191005
  Serious: Yes (Hospitalization)
  Sender: FDA-Public Use
  Company Number: US-VIFOR (INTERNATIONAL) INC.-VIT-2019-08732

PATIENT
  Sex: Female

DRUGS (2)
  1. VELTASSA [Suspect]
     Active Substance: PATIROMER
     Dates: start: 201908, end: 201908
  2. VELTASSA [Suspect]
     Active Substance: PATIROMER
     Indication: PRODUCT USED FOR UNKNOWN INDICATION
     Dates: start: 201906

REACTIONS (4)
  - Gastrointestinal disorder [Not Recovered/Not Resolved]
  - Ill-defined disorder [Unknown]
  - Drug hypersensitivity [Unknown]
  - Inflammation [Unknown]

NARRATIVE: CASE EVENT DATE: 201908
